FAERS Safety Report 7316303-7 (Version None)
Quarter: 2011Q1

REPORT INFORMATION
  Report Type: 
  Country: None (occurrence: None)
  Receive Date: 20110225
  Receipt Date: 20110216
  Transmission Date: 20110831
  Serious: Yes (Other)
  Sender: FDA-Public Use
  Company Number: US-ASTRAZENECA-2011SE09248

PATIENT
  Age: 70 Year
  Sex: Female

DRUGS (1)
  1. ARIMIDEX [Suspect]
     Route: 048

REACTIONS (3)
  - RECURRENT CANCER [None]
  - PAIN IN EXTREMITY [None]
  - BACK PAIN [None]
